FAERS Safety Report 11141082 (Version 1)
Quarter: 2015Q2

REPORT INFORMATION
  Report Type: Spontaneous
  Country: US (occurrence: None)
  Receive Date: 20150522
  Receipt Date: 20150522
  Transmission Date: 20150821
  Serious: Yes (Other)
  Sender: FDA-Public Use
  Company Number: CIO15029907

PATIENT
  Sex: Female

DRUGS (4)
  1. CREST 3D WHITE WHITESTRIPS DENTAL WHITENING KIT, VERSION UNKNOWN(HYDROGEN PEROXIDE 5.3-14 %) STRIP, 1STRIP [Suspect]
     Active Substance: HYDROGEN PEROXIDE
     Dosage: UNSPECIFIED STRIP, UNSPECIFIED FREQUENCY, INTRAORAL
     Route: 050
  2. CREST 3D WHITE LUXE MULTI-CARE WHTING ORAL RINSE, VERSION/FLAVOR UNK(ETHANOL UNK UNK, HYDROGEN PEROXIDE 15 %) LIQUID, 15ML [Suspect]
     Active Substance: ALCOHOL\HYDROGEN PEROXIDE
     Dosage: UNSPECIFIED AMOUNT, UNSPECIFIED FREQUENCY, INTRAORAL
     Route: 050
  3. CREST 3D WHITE [Suspect]
     Active Substance: SODIUM FLUORIDE
     Dosage: 1 APPLIC, UNKNOWN FREQUENCY, INTRAORAL
     Route: 044
  4. CREST 3D WHITE LUXE [Suspect]
     Active Substance: POTASSIUM NITRATE\SODIUM FLUORIDE

REACTIONS (2)
  - Tooth loss [None]
  - Tooth fracture [None]
